FAERS Safety Report 9874980 (Version 1)
Quarter: 2014Q1

REPORT INFORMATION
  Report Type: Other
  Country: US (occurrence: US)
  Receive Date: 20140206
  Receipt Date: 20140206
  Transmission Date: 20141002
  Serious: No
  Sender: FDA-Public Use
  Company Number: US-ACORDA-ACO_35698_2013

PATIENT
  Sex: Female

DRUGS (5)
  1. AMPYRA [Suspect]
     Indication: GAIT DISTURBANCE
     Dosage: 10MG , BID
     Dates: start: 201103
  2. AMPYRA [Suspect]
     Dosage: 10 MG, QD
  3. COPAXONE [Concomitant]
     Indication: PRODUCT USED FOR UNKNOWN INDICATION
     Dosage: UNK
  4. OXYTROL [Concomitant]
     Indication: PRODUCT USED FOR UNKNOWN INDICATION
  5. TIZANIDINE [Concomitant]
     Indication: PRODUCT USED FOR UNKNOWN INDICATION
     Dosage: UNK

REACTIONS (2)
  - Gait disturbance [Unknown]
  - Dizziness [Unknown]
